FAERS Safety Report 5495671-5 (Version None)
Quarter: 2007Q4

REPORT INFORMATION
  Report Type: 
  Country: None (occurrence: None)
  Receive Date: 20071015
  Receipt Date: 20070522
  Transmission Date: 20080405
  Serious: Yes (Other)
  Sender: FDA-Public Use
  Company Number: S07-USA-02197-01

PATIENT
  Age: 80 Year
  Sex: Male

DRUGS (5)
  1. LEXAPRO [Suspect]
     Indication: DEPRESSION
     Dosage: 5 MG QD PO
     Route: 048
     Dates: start: 20070521, end: 20070521
  2. AMARYL [Concomitant]
  3. PLAVIX [Concomitant]
  4. ZETIA [Concomitant]
  5. PREVACID [Concomitant]

REACTIONS (5)
  - CONTUSION [None]
  - DIZZINESS [None]
  - FALL [None]
  - NAUSEA [None]
  - SYNCOPE [None]
